FAERS Safety Report 8557565-8 (Version None)
Quarter: 2012Q3

REPORT INFORMATION
  Report Type: 
  Country: None (occurrence: None)
  Receive Date: 20120801
  Receipt Date: 20120723
  Transmission Date: 20120928
  Serious: Yes (Other)
  Sender: FDA-Public Use
  Company Number: US-ASTRAZENECA-2010SE38854

PATIENT
  Age: 54 Year
  Sex: Female

DRUGS (5)
  1. EFFEXOR XR [Concomitant]
  2. ZOMIG-ZMT [Suspect]
     Dosage: ZOMIG
     Route: 048
  3. ZOMIG-ZMT [Suspect]
     Route: 048
  4. NEXIUM [Suspect]
     Route: 048
  5. ZOMIG-ZMT [Suspect]
     Dosage: TAKES TWO TO FOUR TABLETS A DAY SOMETIMES DEPENDING ON HER HEADACHE
     Route: 048

REACTIONS (10)
  - CRANIOCEREBRAL INJURY [None]
  - MIGRAINE [None]
  - NAUSEA [None]
  - DRUG DOSE OMISSION [None]
  - ADVERSE EVENT [None]
  - DRUG INEFFECTIVE [None]
  - CIRCUMSTANCE OR INFORMATION CAPABLE OF LEADING TO MEDICATION ERROR [None]
  - SLEEP DISORDER [None]
  - HEADACHE [None]
  - ROAD TRAFFIC ACCIDENT [None]
